FAERS Safety Report 8013869-9 (Version None)
Quarter: 2011Q4

REPORT INFORMATION
  Report Type: 
  Country: None (occurrence: None)
  Receive Date: 20111229
  Receipt Date: 20111219
  Transmission Date: 20120403
  Serious: Yes (Hospitalization, Disabling, Other)
  Sender: FDA-Public Use
  Company Number: US-PFIZER INC-2011116370

PATIENT
  Sex: Female

DRUGS (8)
  1. AMOXICILLIN [Suspect]
     Indication: PSORIASIS
     Dosage: 500 MG, UNK
     Route: 065
     Dates: start: 20090306
  2. LEVAQUIN [Suspect]
     Indication: BACTERIAL INFECTION
     Dosage: 750 MG, UNK
     Route: 042
     Dates: start: 20090326
  3. LEVAQUIN [Suspect]
     Indication: GASTROENTERITIS
     Dosage: 750 MG, UNK
     Route: 042
     Dates: start: 20090316
  4. LEVAQUIN [Suspect]
     Indication: URINARY TRACT INFECTION
     Dosage: 500 MG, UNK
     Route: 042
     Dates: start: 20090314
  5. LEVAQUIN [Suspect]
     Indication: PSORIASIS
     Dosage: 250 MG, UNK
     Route: 042
     Dates: start: 20090401, end: 20090408
  6. VANCOMYCIN HCL [Suspect]
     Indication: STAPHYLOCOCCAL INFECTION
     Route: 042
  7. IBUPROFEN [Suspect]
     Indication: PRODUCT USED FOR UNKNOWN INDICATION
     Dosage: 200 MG, UNK
     Route: 065
     Dates: start: 20090404, end: 20090504
  8. PANTOPRAZOLE [Suspect]
     Indication: PRODUCT USED FOR UNKNOWN INDICATION
     Route: 065

REACTIONS (10)
  - TOXIC EPIDERMAL NECROLYSIS [None]
  - STEVENS-JOHNSON SYNDROME [None]
  - PARALYSIS [None]
  - CARDIAC FAILURE CONGESTIVE [None]
  - CARDIAC VALVE DISEASE [None]
  - ANAEMIA [None]
  - CEREBRAL HAEMORRHAGE [None]
  - RENAL FAILURE [None]
  - CEREBROVASCULAR ACCIDENT [None]
  - SUBARACHNOID HAEMORRHAGE [None]
